FAERS Safety Report 5479208-2 (Version None)
Quarter: 2007Q4

REPORT INFORMATION
  Report Type: 
  Country: None (occurrence: None)
  Receive Date: 20071008
  Receipt Date: 20071002
  Transmission Date: 20080405
  Serious: Yes (Hospitalization)
  Sender: FDA-Public Use
  Company Number: US-ASTRAZENECA-2007UW22949

PATIENT
  Age: 892 Month
  Sex: Female
  Weight: 89.7 kg

DRUGS (2)
  1. ARIMIDEX [Suspect]
     Indication: BREAST CANCER
     Route: 048
     Dates: start: 20050920, end: 20060908
  2. CHEMOTHERAPY [Concomitant]
     Dates: start: 20050501, end: 20050801

REACTIONS (1)
  - CEREBRAL ISCHAEMIA [None]
